FAERS Safety Report 6220957-6 (Version None)
Quarter: 2009Q2

REPORT INFORMATION
  Report Type: 
  Country: None (occurrence: None)
  Receive Date: 20090610
  Receipt Date: 20090526
  Transmission Date: 20091009
  Serious: Yes (Life-Threatening, Hospitalization)
  Sender: FDA-Public Use
  Company Number: FR-PFIZER INC-2009217825

PATIENT
  Age: 74 Year

DRUGS (13)
  1. ADRIAMYCIN RDF [Suspect]
     Dosage: 94 MG, CYCLIC, 1 IN 21 DAYS
     Route: 042
     Dates: start: 20090212
  2. METHOTREXATE [Suspect]
     Dosage: 15 MG, CYCLIC, 1 IN 21 DAYS
     Route: 037
     Dates: start: 20090211, end: 20090330
  3. VINCRISTINE SULFATE [Suspect]
     Dosage: 2 MG, UNK
     Route: 042
     Dates: start: 20090212
  4. PREDNISONE [Suspect]
     Dosage: UNK
     Route: 042
     Dates: start: 20090211, end: 20090216
  5. MABTHERA [Suspect]
     Dosage: 690 MG, CYCLIC, 1 IN 21 DAYS
     Route: 037
     Dates: start: 20090211, end: 20090330
  6. ENDOXAN [Suspect]
     Dosage: 1400 MG, UNK
     Route: 042
     Dates: start: 20090212
  7. NEUPOGEN [Suspect]
  8. SECTRAL [Concomitant]
     Dosage: 200 MG, 1X/DAY
  9. ZYLORIC ^FAES^ [Concomitant]
     Dosage: 300 MG, 1X/DAY
  10. ELISOR [Concomitant]
     Dosage: 20 MG, 1X/DAY
  11. MOPRAL [Concomitant]
     Dosage: 20 MG, 1X/DAY
  12. PERINDOPRIL ERBUMINE [Concomitant]
     Dosage: 4 MG, 1X/DAY
  13. NOVORAPID [Concomitant]

REACTIONS (1)
  - LUNG DISORDER [None]
